FAERS Safety Report 25516655 (Version 1)
Quarter: 2025Q3

REPORT INFORMATION
  Report Type: Spontaneous
  Country: US (occurrence: US)
  Receive Date: 20250704
  Receipt Date: 20250704
  Transmission Date: 20251021
  Serious: No
  Sender: RADIUS PHARM
  Company Number: US-RADIUS HEALTH INC.-US-RADIUS-25045879

PATIENT
  Sex: Female
  Weight: 53.107 kg

DRUGS (2)
  1. TYMLOS [Suspect]
     Active Substance: ABALOPARATIDE
     Indication: Osteoporosis
     Dosage: 80 MICROGRAM, QD, DAILY
     Route: 058
  2. TYMLOS [Suspect]
     Active Substance: ABALOPARATIDE
     Dosage: 50 MICROGRAM, QD
     Route: 058
     Dates: end: 20250310

REACTIONS (5)
  - Pyrexia [Recovered/Resolved]
  - Pain [Recovered/Resolved]
  - Mood altered [Recovered/Resolved]
  - Confusional state [Recovered/Resolved]
  - Intentional product use issue [Unknown]
